FAERS Safety Report 14290598 (Version 1)
Quarter: 2017Q4

REPORT INFORMATION
  Report Type: Spontaneous
  Country: US (occurrence: US)
  Receive Date: 20171215
  Receipt Date: 20171215
  Transmission Date: 20180321
  Serious: Yes (Other)
  Sender: FDA-Public Use
  Company Number: None

PATIENT
  Sex: Female

DRUGS (17)
  1. VOTRIENT [Suspect]
     Active Substance: PAZOPANIB HYDROCHLORIDE
     Indication: BREAST CANCER FEMALE
     Route: 048
     Dates: start: 20121016
  2. VITAMIN D [Concomitant]
     Active Substance: CHOLECALCIFEROL
  3. ST JOSEPH [Concomitant]
  4. LORAZEPAM. [Concomitant]
     Active Substance: LORAZEPAM
  5. OXYCODONE [Concomitant]
     Active Substance: OXYCODONE
  6. LEVOTHYROXIN [Concomitant]
     Active Substance: LEVOTHYROXINE
  7. CYMBALTA [Concomitant]
     Active Substance: DULOXETINE HYDROCHLORIDE
  8. LIPITOR [Concomitant]
     Active Substance: ATORVASTATIN CALCIUM
  9. SEROQUEL [Concomitant]
     Active Substance: QUETIAPINE FUMARATE
  10. METOPROLOL. [Concomitant]
     Active Substance: METOPROLOL
  11. ZOFRAN [Concomitant]
     Active Substance: ONDANSETRON HYDROCHLORIDE
  12. OMEPRAZOLE. [Concomitant]
     Active Substance: OMEPRAZOLE
  13. LOPERAMIDE [Concomitant]
     Active Substance: LOPERAMIDE
  14. ACTOS [Concomitant]
     Active Substance: PIOGLITAZONE HYDROCHLORIDE
  15. FISH OIL [Concomitant]
     Active Substance: FISH OIL
  16. CALCIUM D [Concomitant]
     Active Substance: CALCIUM\VITAMIN D
  17. ARIMIDEX [Concomitant]
     Active Substance: ANASTROZOLE

REACTIONS (7)
  - Breast mass [None]
  - Metastases to lung [None]
  - Metastases to kidney [None]
  - Metastases to adrenals [None]
  - Metastases to central nervous system [None]
  - Metastases to heart [None]
  - Metastases to bone [None]
